FAERS Safety Report 4987684-4 (Version None)
Quarter: 2006Q2

REPORT INFORMATION
  Report Type: 
  Country: None (occurrence: None)
  Receive Date: 20060428
  Receipt Date: 20060428
  Transmission Date: 20061013
  Serious: Yes (Hospitalization)
  Sender: FDA-Public Use
  Company Number: None

PATIENT
  Sex: Male

DRUGS (1)
  1. ROSUVASTATIN  40 MG [Suspect]
     Indication: HYPERLIPIDAEMIA
     Dosage: 20 MG  DAILY PO
     Route: 048
     Dates: start: 20050511, end: 20051205

REACTIONS (3)
  - ALCOHOL USE [None]
  - PAIN [None]
  - RHABDOMYOLYSIS [None]
